FAERS Safety Report 8596070-X (Version None)
Quarter: 2012Q3

REPORT INFORMATION
  Report Type: 
  Country: None (occurrence: None)
  Receive Date: 20120801
  Receipt Date: 20120717
  Transmission Date: 20120928
  Serious: Yes (Disabling, Other)
  Sender: FDA-Public Use
  Company Number: 1353108

PATIENT
  Sex: Female

DRUGS (5)
  1. VINCRISTINE SULFATE [Suspect]
     Indication: BURKITT'S LYMPHOMA
  2. DOXORUBICIN HYDROCHLORIDE [Suspect]
     Indication: BURKITT'S LYMPHOMA
  3. CYCLOPHOSPHAMIDE [Suspect]
     Indication: BURKITT'S LYMPHOMA
  4. (MABTHERA) [Suspect]
     Indication: BURKITT'S LYMPHOMA
     Dosage: INTRAVENOUS DRIP
     Route: 041
  5. PREDNISONE [Suspect]
     Indication: BURKITT'S LYMPHOMA

REACTIONS (2)
  - MYELOPATHY [None]
  - GAIT DISTURBANCE [None]
